FAERS Safety Report 19875166 (Version 1)
Quarter: 2021Q3

REPORT INFORMATION
  Report Type: Report from Study
  Country: IT (occurrence: IT)
  Receive Date: 20210923
  Receipt Date: 20210923
  Transmission Date: 20211014
  Serious: Yes (Other)
  Sender: FDA-Public Use
  Company Number: IT-BAUSCH-BL-2021-031754

PATIENT
  Age: 87 Year
  Sex: Male

DRUGS (11)
  1. BISOPROLOL FUMARATE. [Suspect]
     Active Substance: BISOPROLOL FUMARATE
     Indication: CARDIAC FAILURE
     Route: 065
  2. ACRYLATE?BASED HYPOALLERGENIC ADHESIVE (PATCH) [Suspect]
     Active Substance: DEVICE
     Indication: CARDIAC FAILURE
     Route: 065
  3. CARDURA [Suspect]
     Active Substance: DOXAZOSIN MESYLATE
     Indication: CARDIAC FAILURE
     Route: 065
     Dates: start: 20210415, end: 20210814
  4. RAMIPRIL. [Suspect]
     Active Substance: RAMIPRIL
     Indication: HYPERTENSION
     Route: 065
  5. LASIX [Suspect]
     Active Substance: FUROSEMIDE
     Indication: HYPERTENSION
     Dosage: 25 MG COMPRESSE
     Route: 065
     Dates: start: 20210701
  6. GLYCERYL TRINITRATE [Suspect]
     Active Substance: NITROGLYCERIN
     Indication: CARDIAC FAILURE
     Route: 065
  7. CLOPIDOGREL [Concomitant]
     Active Substance: CLOPIDOGREL BISULFATE
     Indication: ATRIAL FIBRILLATION
     Dates: start: 20210415
  8. ELIQUIS [Concomitant]
     Active Substance: APIXABAN
     Indication: ATRIAL FIBRILLATION
     Dates: start: 20210415
  9. ATORVASTATIN [Concomitant]
     Active Substance: ATORVASTATIN
     Indication: DYSLIPIDAEMIA
  10. LUVION (CANRENOIC ACID) [Suspect]
     Active Substance: CANRENOIC ACID
     Indication: CARDIAC FAILURE
     Dosage: 50 MG COMPRESSE
     Route: 065
     Dates: start: 20210415
  11. CLONIDINE HYDROCHLORIDE. [Suspect]
     Active Substance: CLONIDINE HYDROCHLORIDE
     Indication: CARDIAC FAILURE
     Route: 065

REACTIONS (1)
  - Hypotension [Recovering/Resolving]

NARRATIVE: CASE EVENT DATE: 20210814
